FAERS Safety Report 14248941 (Version 1)
Quarter: 2017Q4

REPORT INFORMATION
  Report Type: Spontaneous
  Country: US (occurrence: US)
  Receive Date: 20171204
  Receipt Date: 20171204
  Transmission Date: 20180321
  Serious: No
  Sender: FDA-Public Use
  Company Number: US-BAYER-2017-226393

PATIENT
  Age: 57 Year
  Sex: Female
  Weight: 58.96 kg

DRUGS (6)
  1. ICY HOT [Concomitant]
     Active Substance: MENTHOL\METHYL SALICYLATE
     Indication: BACK PAIN
  2. ALEVE TENS DEVICE DIRECT THERAPY UNIT [Suspect]
     Active Substance: DEVICE
     Indication: ARTHRALGIA
     Dates: start: 20171120, end: 20171120
  3. ALEVE [Suspect]
     Active Substance: NAPROXEN SODIUM
     Indication: ARTHRALGIA
     Dosage: 1-2 NIGHTLY ON AN OFF FOR 20 YEARS
     Route: 048
     Dates: start: 1997
  4. TRAMADOL. [Concomitant]
     Active Substance: TRAMADOL
  5. NORCO [Concomitant]
     Active Substance: ACETAMINOPHEN\HYDROCODONE BITARTRATE
  6. ASPERCREME NOS [Concomitant]
     Active Substance: MENTHOL\TROLAMINE SALICYLATE
     Indication: BACK PAIN

REACTIONS (4)
  - Medical device site pain [Recovered/Resolved]
  - Device stimulation issue [Recovered/Resolved]
  - Off label use of device [Unknown]
  - Drug ineffective [Unknown]

NARRATIVE: CASE EVENT DATE: 20171120
